FAERS Safety Report 14189922 (Version 3)
Quarter: 2018Q2

REPORT INFORMATION
  Report Type: Spontaneous
  Country: US (occurrence: US)
  Receive Date: 20171115
  Receipt Date: 20180525
  Transmission Date: 20180711
  Serious: Yes (Other)
  Sender: FDA-Public Use
  Company Number: US-PFIZER INC-2017234839

PATIENT
  Age: 67 Year
  Sex: Female

DRUGS (1)
  1. XELJANZ [Suspect]
     Active Substance: TOFACITINIB CITRATE
     Indication: RHEUMATOID ARTHRITIS
     Dosage: 5 MG, UNK

REACTIONS (16)
  - Retinal tear [Unknown]
  - Pain [Not Recovered/Not Resolved]
  - Autoimmune disorder [Unknown]
  - Retinal haemorrhage [Unknown]
  - Apparent death [Unknown]
  - Stress [Unknown]
  - Dizziness [Unknown]
  - Transient ischaemic attack [Unknown]
  - Musculoskeletal stiffness [Unknown]
  - Joint stiffness [Unknown]
  - Walking disability [Unknown]
  - Coma [Unknown]
  - Gastrooesophageal reflux disease [Unknown]
  - Breast cancer [Unknown]
  - Malaise [Unknown]
  - Fall [Unknown]
